FAERS Safety Report 5027089-3 (Version None)
Quarter: 2006Q2

REPORT INFORMATION
  Report Type: 
  Country: None (occurrence: None)
  Receive Date: 20060612
  Receipt Date: 20060525
  Transmission Date: 20061013
  Serious: No
  Sender: FDA-Public Use
  Company Number: 34995

PATIENT
  Age: 76 Year

DRUGS (1)
  1. MIOSTAT [Suspect]

REACTIONS (1)
  - ENDOPHTHALMITIS [None]
